FAERS Safety Report 9165169 (Version 1)
Quarter: 2013Q1

REPORT INFORMATION
  Report Type: Report from Study
  Country: US (occurrence: US)
  Receive Date: 20130315
  Receipt Date: 20130315
  Transmission Date: 20140127
  Serious: Yes (Other)
  Sender: FDA-Public Use
  Company Number: US-EISAI INC-E2007-00886-CLI-US

PATIENT
  Age: 13 Year
  Sex: Male
  Weight: 38.6 kg

DRUGS (7)
  1. E2007 (PERAMPANEL) [Suspect]
     Indication: PARTIAL SEIZURES
     Dosage: CORE STUDY
     Route: 048
     Dates: start: 20110829, end: 20120108
  2. E2007 (PERAMPANEL) [Suspect]
     Dosage: EXTENSION
     Route: 048
     Dates: start: 20120109, end: 20120219
  3. E2007 (PERAMPANEL) [Suspect]
     Dosage: EXTENSION
     Route: 048
     Dates: start: 20120220, end: 20120220
  4. E2007 (PERAMPANEL) [Suspect]
     Dosage: EXTENSION
     Route: 048
     Dates: start: 20120224
  5. KEPPRA [Concomitant]
     Indication: CONVULSION
     Route: 048
     Dates: start: 20101228
  6. TRILEPTAL [Concomitant]
     Indication: CONVULSION
     Dosage: 450MG AM; 600MG PM
     Route: 048
     Dates: start: 20110822
  7. VIMPAT [Concomitant]
     Indication: CONVULSION
     Dosage: 25MG AM; 75MG PM
     Route: 048
     Dates: start: 20110425

REACTIONS (2)
  - Accidental overdose [Recovered/Resolved]
  - Dizziness [Recovered/Resolved]
